FAERS Safety Report 11744672 (Version 1)
Quarter: 2015Q4

REPORT INFORMATION
  Report Type: Spontaneous
  Country: None (occurrence: ES)
  Receive Date: 20151116
  Receipt Date: 20151116
  Transmission Date: 20160304
  Serious: No
  Sender: FDA-Public Use
  Company Number: ES-ALK-ABELLO A/S-1044259

PATIENT
  Sex: Female

DRUGS (1)
  1. COMMON PAPER WASP VENOM PROTEIN [Suspect]
     Active Substance: POLISTES FUSCATUS VENOM PROTEIN
     Indication: ALLERGY TO VENOM
     Route: 058

REACTIONS (2)
  - Injection site erythema [Recovered/Resolved]
  - Injection site swelling [Recovered/Resolved]
